FAERS Safety Report 22352954 (Version 3)
Quarter: 2023Q4

REPORT INFORMATION
  Report Type: Other
  Country: US (occurrence: None)
  Receive Date: 20230523
  Receipt Date: 20231013
  Transmission Date: 20240110
  Serious: Yes (Hospitalization)
  Sender: FDA-Public Use
  Company Number: US-ROCHE-3354278

PATIENT
  Age: 53 Year
  Sex: Female

DRUGS (2)
  1. OCREVUS [Suspect]
     Active Substance: OCRELIZUMAB
     Indication: Relapsing-remitting multiple sclerosis
     Dosage: DATE OF TREATMENT: 17/SEP/2019, 16/DEC/2021
     Route: 042
     Dates: start: 20170918, end: 20220915
  2. OCREVUS [Suspect]
     Active Substance: OCRELIZUMAB
     Dosage: LATEST DATE OF TREATMENT: 11/MAY/2023
     Route: 042

REACTIONS (6)
  - Salmonellosis [Not Recovered/Not Resolved]
  - Localised infection [Unknown]
  - Colitis [Not Recovered/Not Resolved]
  - Clostridium difficile infection [Not Recovered/Not Resolved]
  - Illness [Unknown]
  - Diarrhoea [Unknown]

NARRATIVE: CASE EVENT DATE: 20221101
